FAERS Safety Report 15895155 (Version 1)
Quarter: 2019Q1

REPORT INFORMATION
  Report Type: Report from Study
  Country: US (occurrence: US)
  Receive Date: 20190131
  Receipt Date: 20190131
  Transmission Date: 20190417
  Serious: Yes (Death)
  Sender: FDA-Public Use
  Company Number: US-HLSUS-2019-US-000046

PATIENT
  Age: 56 Year
  Sex: Male
  Weight: 62.1 kg

DRUGS (1)
  1. CLOZAPINE. [Suspect]
     Active Substance: CLOZAPINE

REACTIONS (2)
  - Neutrophil count increased [Unknown]
  - Metastatic neoplasm [Fatal]

NARRATIVE: CASE EVENT DATE: 20181005
